FAERS Safety Report 13895255 (Version 2)
Quarter: 2017Q3

REPORT INFORMATION
  Report Type: Spontaneous
  Country: GB (occurrence: GB)
  Receive Date: 20170823
  Receipt Date: 20170823
  Transmission Date: 20171127
  Serious: Yes (Disabling, Other)
  Sender: FDA-Public Use
  Company Number: GB-CIPLA LTD.-2017GB14139

PATIENT

DRUGS (8)
  1. LITHIUM. [Concomitant]
     Active Substance: LITHIUM
     Dosage: 20 MG, UNK
     Route: 065
  2. PROPRANOLOL [Concomitant]
     Active Substance: PROPRANOLOL HYDROCHLORIDE
     Dosage: 160 MG, UNK
     Route: 065
  3. CITALOPRAM [Suspect]
     Active Substance: CITALOPRAM HYDROBROMIDE
     Indication: DEPRESSION
     Dosage: 10 MG, UNK
     Route: 048
     Dates: start: 20111210, end: 20120125
  4. CITALOPRAM [Suspect]
     Active Substance: CITALOPRAM HYDROBROMIDE
     Dosage: UNK
     Route: 065
     Dates: start: 2013
  5. N-ACETYLCYSTEINE [Concomitant]
     Active Substance: ACETYLCYSTEINE
     Dosage: 1200 MG, UNK
     Route: 065
  6. FLUOXETINE [Concomitant]
     Active Substance: FLUOXETINE HYDROCHLORIDE
     Indication: OBSESSIVE-COMPULSIVE DISORDER
     Dosage: 20 MG, UNK
     Route: 065
  7. MIRTAZAPINE. [Concomitant]
     Active Substance: MIRTAZAPINE
     Dosage: 3.75 MG, UNK
     Route: 065
  8. PREGABALIN. [Concomitant]
     Active Substance: PREGABALIN
     Dosage: 225 MG, UNK
     Route: 065

REACTIONS (14)
  - Amnesia [Not Recovered/Not Resolved]
  - Cognitive disorder [Recovering/Resolving]
  - Hypersensitivity [Not Recovered/Not Resolved]
  - Agitation [Unknown]
  - Fear [Not Recovered/Not Resolved]
  - Bruxism [Unknown]
  - Visual snow syndrome [Recovering/Resolving]
  - Disturbance in attention [Not Recovered/Not Resolved]
  - Panic disorder [Unknown]
  - Condition aggravated [Unknown]
  - Akathisia [Recovering/Resolving]
  - Withdrawal syndrome [Unknown]
  - Intrusive thoughts [Unknown]
  - Dysphoria [Unknown]

NARRATIVE: CASE EVENT DATE: 201203
